FAERS Safety Report 20833892 (Version 1)
Quarter: 2022Q2

REPORT INFORMATION
  Report Type: Report from Study
  Country: ES (occurrence: ES)
  Receive Date: 20220516
  Receipt Date: 20220516
  Transmission Date: 20220721
  Serious: Yes (Other)
  Sender: FDA-Public Use
  Company Number: ES-FERRINGPH-2022FE02138

PATIENT
  Age: 70 Year
  Sex: Female

DRUGS (7)
  1. MESALAMINE [Suspect]
     Active Substance: MESALAMINE
     Indication: Colitis ulcerative
     Dosage: UNK
     Route: 048
  2. MESALAMINE [Suspect]
     Active Substance: MESALAMINE
     Dosage: UNK
     Route: 061
  3. VEDOLIZUMAB [Concomitant]
     Active Substance: VEDOLIZUMAB
     Indication: Colitis ulcerative
     Dosage: UNK
  4. ADALIMUMAB [Concomitant]
     Active Substance: ADALIMUMAB
     Indication: Colitis ulcerative
     Dosage: 160 MILLIGRAM
  5. ADALIMUMAB [Concomitant]
     Active Substance: ADALIMUMAB
     Dosage: 80 MILLIGRAM
  6. ADALIMUMAB [Concomitant]
     Active Substance: ADALIMUMAB
     Dosage: 40 MILLIGRAM
  7. USTEKINUMAB [Concomitant]
     Active Substance: USTEKINUMAB
     Indication: Colitis ulcerative
     Dosage: UNK

REACTIONS (4)
  - Anal abscess [Recovered/Resolved]
  - Interstitial lung disease [Recovered/Resolved]
  - Clostridium difficile infection [Recovered/Resolved]
  - Anal fistula [Recovered/Resolved]
